FAERS Safety Report 5295411-9 (Version None)
Quarter: 2007Q2

REPORT INFORMATION
  Report Type: 
  Country: None (occurrence: None)
  Receive Date: 20070412
  Receipt Date: 20070402
  Transmission Date: 20071010
  Serious: Yes (Other)
  Sender: FDA-Public Use
  Company Number: FR-PFIZER INC-2007026953

PATIENT
  Age: 67 Year
  Sex: Male

DRUGS (7)
  1. LYRICA [Suspect]
     Indication: NEURALGIA
     Dates: start: 20070101, end: 20070301
  2. DIAMICRON [Concomitant]
  3. ALLOPURINOL [Concomitant]
  4. VASTEN [Concomitant]
  5. KARDEGIC [Concomitant]
  6. TRIATEC [Concomitant]
  7. CHONDROSULF [Concomitant]

REACTIONS (1)
  - HYPERTENSION [None]
